FAERS Safety Report 5430868-1 (Version None)
Quarter: 2007Q3

REPORT INFORMATION
  Report Type: 
  Country: None (occurrence: None)
  Receive Date: 20070830
  Receipt Date: 20061228
  Transmission Date: 20080115
  Serious: No
  Sender: FDA-Public Use
  Company Number: A0632860A

PATIENT
  Age: 38 Year
  Sex: Male

DRUGS (3)
  1. WELLBUTRIN XL [Suspect]
     Indication: SEASONAL AFFECTIVE DISORDER
     Dosage: 150MG PER DAY
     Route: 048
     Dates: start: 20061207, end: 20061222
  2. ADVIL LIQUI-GELS [Concomitant]
  3. ALBUTEROL [Concomitant]

REACTIONS (3)
  - INFLAMMATION [None]
  - RASH ERYTHEMATOUS [None]
  - SKIN WARM [None]
